FAERS Safety Report 18403734 (Version 2)
Quarter: 2020Q4

REPORT INFORMATION
  Report Type: Spontaneous
  Country: BR (occurrence: BR)
  Receive Date: 20201020
  Receipt Date: 20201104
  Transmission Date: 20210114
  Serious: Yes (Other)
  Sender: FDA-Public Use
  Company Number: NVSC2020BR280158

PATIENT
  Age: 60 Year

DRUGS (3)
  1. IMATINIB. [Suspect]
     Active Substance: IMATINIB MESYLATE
     Indication: CHRONIC MYELOID LEUKAEMIA
     Dosage: 400 MG, QD
     Route: 065
  2. TASIGNA [Concomitant]
     Active Substance: NILOTINIB
     Indication: CHRONIC MYELOID LEUKAEMIA
     Dosage: 800 MG, QD
     Route: 065
  3. IMATINIB. [Suspect]
     Active Substance: IMATINIB MESYLATE
     Dosage: 300 MG
     Route: 065

REACTIONS (8)
  - Blister [Unknown]
  - Oral mucosal blistering [Unknown]
  - Skin reaction [Recovered/Resolved]
  - Skin lesion [Recovered/Resolved]
  - Rash [Unknown]
  - Stevens-Johnson syndrome [Unknown]
  - Drug intolerance [Unknown]
  - Rash pruritic [Unknown]
